FAERS Safety Report 5806357-9 (Version None)
Quarter: 2008Q3

REPORT INFORMATION
  Report Type: 
  Country: None (occurrence: None)
  Receive Date: 20080710
  Receipt Date: 20080703
  Transmission Date: 20090109
  Serious: Yes (Other)
  Sender: FDA-Public Use
  Company Number: AU-ABBOTT-08P-008-0452942-00

PATIENT
  Age: 71 Year
  Sex: Female

DRUGS (2)
  1. VALPROATE SODIUM [Suspect]
     Indication: CONVULSION
     Route: 065
  2. LAMOTRIGINE [Concomitant]
     Indication: CONVULSION
     Route: 065

REACTIONS (4)
  - APRAXIA [None]
  - ASTERIXIS [None]
  - HYPERAMMONAEMIA [None]
  - METABOLIC ENCEPHALOPATHY [None]
